FAERS Safety Report 20353548 (Version 2)
Quarter: 2022Q3

REPORT INFORMATION
  Report Type: Report from Study
  Country: BR (occurrence: BR)
  Receive Date: 20220119
  Receipt Date: 20220824
  Transmission Date: 20221027
  Serious: Yes (Disabling)
  Sender: FDA-Public Use
  Company Number: BR-ABBVIE-22K-020-4237356-00

PATIENT
  Age: 81 Year
  Sex: Female
  Weight: 48 kg

DRUGS (9)
  1. RINVOQ [Suspect]
     Active Substance: UPADACITINIB
     Indication: Rheumatoid arthritis
     Route: 048
     Dates: start: 2020
  2. DONEPEZIL HYDROCHLORIDE [Concomitant]
     Active Substance: DONEPEZIL HYDROCHLORIDE
     Indication: Dizziness
     Route: 065
  3. ASPIRIN [Concomitant]
     Active Substance: ASPIRIN
     Indication: Angiopathy
  4. CILOSTAZOL [Concomitant]
     Active Substance: CILOSTAZOL
     Indication: Angiopathy
  5. ALENDRONATE SODIUM [Concomitant]
     Active Substance: ALENDRONATE SODIUM
     Indication: Osteoporosis
     Route: 048
  6. ALENDRONATE SODIUM [Concomitant]
     Active Substance: ALENDRONATE SODIUM
     Indication: Osteoarthritis
  7. CALCIUM [Concomitant]
     Active Substance: CALCIUM
     Indication: Bone disorder
     Route: 048
  8. COLLAGEN [Concomitant]
     Active Substance: COLLAGEN
     Indication: Arthropathy
     Route: 048
  9. VITAMIN D3 [Concomitant]
     Active Substance: CHOLECALCIFEROL
     Indication: Asthenia
     Route: 048

REACTIONS (9)
  - Gait inability [Recovered/Resolved]
  - Fall [Recovered/Resolved]
  - Gait inability [Recovered/Resolved]
  - Fall [Recovered/Resolved]
  - Wheelchair user [Recovered/Resolved]
  - Pain in extremity [Recovering/Resolving]
  - Groin pain [Recovering/Resolving]
  - Mental impairment [Unknown]
  - Femur fracture [Recovered/Resolved]

NARRATIVE: CASE EVENT DATE: 20210606
